FAERS Safety Report 11956750 (Version 2)
Quarter: 2016Q1

REPORT INFORMATION
  Report Type: Report from Study
  Country: US (occurrence: US)
  Receive Date: 20160126
  Receipt Date: 20160201
  Transmission Date: 20160526
  Serious: Yes (Hospitalization)
  Sender: FDA-Public Use
  Company Number: US-ABBVIE-15K-163-1347523-00

PATIENT
  Age: 66 Year
  Sex: Female
  Weight: 59.47 kg

DRUGS (14)
  1. LISINOPRIL. [Concomitant]
     Active Substance: LISINOPRIL
     Indication: HYPERTENSION
  2. LEVOTHYROXINE. [Concomitant]
     Active Substance: LEVOTHYROXINE
     Indication: HYPOTHYROIDISM
  3. MYCOPHENOLATE [Concomitant]
     Active Substance: MYCOPHENOLIC ACID
     Indication: PRODUCT USED FOR UNKNOWN INDICATION
  4. CELLCEPT [Concomitant]
     Active Substance: MYCOPHENOLATE MOFETIL\MYCOPHENOLATE MOFETIL HYDROCHLORIDE
     Dates: start: 20150317
  5. HUMIRA [Suspect]
     Active Substance: ADALIMUMAB
     Indication: POLYARTERITIS NODOSA
     Route: 065
     Dates: start: 200312, end: 201404
  6. HUMIRA [Suspect]
     Active Substance: ADALIMUMAB
     Indication: RHEUMATOID ARTHRITIS
     Route: 065
     Dates: start: 20150314
  7. BUPROPION. [Concomitant]
     Active Substance: BUPROPION
     Indication: DEPRESSION
  8. AZATHIOPRINE. [Suspect]
     Active Substance: AZATHIOPRINE
     Indication: PAIN IN EXTREMITY
     Route: 065
     Dates: start: 20150114
  9. CLONAZEPAM. [Concomitant]
     Active Substance: CLONAZEPAM
     Indication: PRODUCT USED FOR UNKNOWN INDICATION
  10. AZATHIOPRINE. [Suspect]
     Active Substance: AZATHIOPRINE
     Indication: PAIN IN EXTREMITY
  11. PREDNISONE. [Concomitant]
     Active Substance: PREDNISONE
     Indication: POLYARTERITIS NODOSA
  12. TRAZODONE [Concomitant]
     Active Substance: TRAZODONE HYDROCHLORIDE
     Indication: PRODUCT USED FOR UNKNOWN INDICATION
  13. CELLCEPT [Concomitant]
     Active Substance: MYCOPHENOLATE MOFETIL\MYCOPHENOLATE MOFETIL HYDROCHLORIDE
     Indication: PRODUCT USED FOR UNKNOWN INDICATION
  14. POTASSIUM CHLORIDE. [Concomitant]
     Active Substance: POTASSIUM CHLORIDE
     Indication: HYPOKALAEMIA

REACTIONS (18)
  - Incorrect product storage [Unknown]
  - Swelling face [Unknown]
  - Pain in extremity [Unknown]
  - Sepsis [Unknown]
  - Mobility decreased [Unknown]
  - Diarrhoea [Recovering/Resolving]
  - Mumps [Unknown]
  - Decreased appetite [Unknown]
  - Skin exfoliation [Unknown]
  - Urticaria [Unknown]
  - Hypersomnia [Unknown]
  - Burning sensation [Not Recovered/Not Resolved]
  - Vomiting [Recovering/Resolving]
  - Peripheral swelling [Unknown]
  - Polyarteritis nodosa [Unknown]
  - Fatigue [Unknown]
  - Pneumonia [Unknown]
  - Nausea [Recovering/Resolving]

NARRATIVE: CASE EVENT DATE: 2014
